FAERS Safety Report 24198835 (Version 2)
Quarter: 2024Q3

REPORT INFORMATION
  Report Type: Spontaneous
  Country: US (occurrence: US)
  Receive Date: 20240812
  Receipt Date: 20240821
  Transmission Date: 20241017
  Serious: No
  Sender: BRISTOL MYERS SQUIBB
  Company Number: US-BRISTOL-MYERS SQUIBB COMPANY-2024-125900

PATIENT
  Age: 61 Year
  Sex: Male

DRUGS (2)
  1. SPRYCEL [Suspect]
     Active Substance: DASATINIB
     Indication: Chronic myeloid leukaemia
     Route: 048
     Dates: start: 202407
  2. TASIGNA [Concomitant]
     Active Substance: NILOTINIB
     Indication: Product used for unknown indication

REACTIONS (13)
  - Abdominal distension [Unknown]
  - Bone pain [Unknown]
  - Nausea [Unknown]
  - Vomiting [Unknown]
  - Pyrexia [Unknown]
  - Burning sensation [Unknown]
  - Swelling [Unknown]
  - Chills [Unknown]
  - Lethargy [Unknown]
  - Fluid retention [Unknown]
  - Weight increased [Unknown]
  - Insomnia [Unknown]
  - Pain [Unknown]
